FAERS Safety Report 5740803-4 (Version None)
Quarter: 2008Q2

REPORT INFORMATION
  Report Type: 
  Country: None (occurrence: None)
  Receive Date: 20080516
  Receipt Date: 20080508
  Transmission Date: 20081010
  Serious: Yes (Other)
  Sender: FDA-Public Use
  Company Number: US-GENENTECH-260786

PATIENT
  Sex: Female

DRUGS (2)
  1. HERCEPTIN [Suspect]
     Indication: INFLAMMATORY CARCINOMA OF THE BREAST
     Dosage: UNK, Q3W
     Route: 042
  2. TAXOTERE [Concomitant]
     Indication: DRUG USE FOR UNKNOWN INDICATION

REACTIONS (4)
  - FLUID OVERLOAD [None]
  - MENTAL STATUS CHANGES [None]
  - PNEUMONITIS [None]
  - RENAL FAILURE [None]
